FAERS Safety Report 26122582 (Version 1)
Quarter: 2025Q4

REPORT INFORMATION
  Report Type: Report from Study
  Country: US (occurrence: US)
  Receive Date: 20251204
  Receipt Date: 20251204
  Transmission Date: 20260117
  Serious: Yes (Other)
  Sender: TEVA
  Company Number: US-TEVA-VS-3397825

PATIENT

DRUGS (7)
  1. PREDNISONE [Suspect]
     Active Substance: PREDNISONE
     Indication: Diffuse large B-cell lymphoma
     Dosage: R-CHOP REGIMEN, 6 CYCLES (EACH LASTING 21 DAYS)
     Route: 065
  2. EPCORITAMAB [Suspect]
     Active Substance: EPCORITAMAB
     Indication: Diffuse large B-cell lymphoma
     Dosage: EVERY 4 WEEKS (28 DAYS CYCLES) UP TO A TOTAL OF 1YEAR
     Route: 058
  3. EPCORITAMAB [Suspect]
     Active Substance: EPCORITAMAB
     Indication: Diffuse large B-cell lymphoma
     Dosage: (CYCLE1-4, EVERY WEEK; CYCLE5-6, EVERY 3 WEEKS)
     Route: 058
  4. VINCRISTINE [Suspect]
     Active Substance: VINCRISTINE
     Indication: Diffuse large B-cell lymphoma
     Dosage: R-CHOP REGIMEN, 6 CYCLES (EACH LASTING 21 DAYS)
     Route: 065
  5. CYCLOPHOSPHAMIDE [Suspect]
     Active Substance: CYCLOPHOSPHAMIDE
     Indication: Diffuse large B-cell lymphoma
     Dosage: R-CHOP REGIMEN, 6 CYCLES (EACH LASTING 21 DAYS)
     Route: 065
  6. RITUXIMAB [Suspect]
     Active Substance: RITUXIMAB
     Indication: Diffuse large B-cell lymphoma
     Dosage: R-CHOP REGIMEN, 6 CYCLES (EACH LASTING 21 DAYS)
     Route: 065
  7. DOXORUBICIN [Suspect]
     Active Substance: DOXORUBICIN
     Indication: Diffuse large B-cell lymphoma
     Dosage: R-CHOP REGIMEN, 6 CYCLES (EACH LASTING 21 DAYS)
     Route: 065

REACTIONS (1)
  - Immune effector cell-associated neurotoxicity syndrome [Recovered/Resolved]
